FAERS Safety Report 25996461 (Version 1)
Quarter: 2025Q4

REPORT INFORMATION
  Report Type: Spontaneous
  Country: BR (occurrence: BR)
  Receive Date: 20251104
  Receipt Date: 20251104
  Transmission Date: 20260119
  Serious: Yes (Hospitalization)
  Sender: SANOFI AVENTIS
  Company Number: BR-SANOFI-02702967

PATIENT
  Age: 11 Year
  Sex: Male
  Weight: 37 kg

DRUGS (1)
  1. DUPIXENT [Suspect]
     Active Substance: DUPILUMAB
     Indication: Dermatitis atopic
     Dosage: 300 MG, Q4W
     Route: 065
     Dates: end: 202508

REACTIONS (4)
  - Spinal disorder [Recovered/Resolved]
  - Muscle spasms [Recovered/Resolved]
  - Weight increased [Unknown]
  - Incorrect dose administered [Unknown]

NARRATIVE: CASE EVENT DATE: 20250101
